FAERS Safety Report 10468797 (Version 1)
Quarter: 2014Q3

REPORT INFORMATION
  Report Type: Spontaneous
  Country: DE (occurrence: DE)
  Receive Date: 20140923
  Receipt Date: 20140923
  Transmission Date: 20150326
  Serious: Yes (Disabling)
  Sender: FDA-Public Use
  Company Number: DE-AUROBINDO-AUR-APL-2014-09981

PATIENT
  Age: 66 Year
  Sex: Female
  Weight: 54 kg

DRUGS (3)
  1. KOMBIGLYZE XR [Suspect]
     Active Substance: METFORMIN HYDROCHLORIDE\SAXAGLIPTIN HYDROCHLORIDE
     Indication: TYPE 2 DIABETES MELLITUS
     Dosage: 2.5 MG, UNK
     Route: 048
     Dates: start: 20121203, end: 20130601
  2. KOMBIGLYZE XR [Suspect]
     Active Substance: METFORMIN HYDROCHLORIDE\SAXAGLIPTIN HYDROCHLORIDE
     Dosage: 1000 MG, UNK
     Route: 048
     Dates: start: 20121203, end: 20130601
  3. METFORMIN [Suspect]
     Active Substance: METFORMIN HYDROCHLORIDE
     Indication: TYPE 2 DIABETES MELLITUS
     Dosage: 1000 MG, TWO TIMES A DAY
     Route: 048
     Dates: start: 20130101

REACTIONS (4)
  - Pancreatic insufficiency [Recovered/Resolved with Sequelae]
  - Pancreatic atrophy [Recovered/Resolved with Sequelae]
  - Pancreatitis chronic [Recovered/Resolved with Sequelae]
  - Hepatic cyst [None]

NARRATIVE: CASE EVENT DATE: 20140730
